FAERS Safety Report 5964852-6 (Version None)
Quarter: 2008Q4

REPORT INFORMATION
  Report Type: 
  Country: None (occurrence: None)
  Receive Date: 20081124
  Receipt Date: 20081124
  Transmission Date: 20090506
  Serious: Yes (Hospitalization)
  Sender: FDA-Public Use
  Company Number: None

PATIENT
  Age: 55 Year
  Sex: Male
  Weight: 83.0083 kg

DRUGS (1)
  1. RITUXIMAB [Suspect]
     Indication: NON-HODGKIN'S LYMPHOMA
     Dosage: 50MG APPROX 25 MINUTES IV DRIP
     Route: 041
     Dates: start: 20080724, end: 20080724

REACTIONS (2)
  - HYPOTENSION [None]
  - INFUSION RELATED REACTION [None]
